FAERS Safety Report 5302437-5 (Version None)
Quarter: 2007Q2

REPORT INFORMATION
  Report Type: 
  Country: None (occurrence: None)
  Receive Date: 20070413
  Receipt Date: 20070403
  Transmission Date: 20071010
  Serious: Yes (Disabling)
  Sender: FDA-Public Use
  Company Number: GXKR2007GB03177

PATIENT
  Age: 76 Year
  Sex: Male
  Weight: 62.5 kg

DRUGS (2)
  1. SIMVASTATIN [Suspect]
     Indication: HYPERCHOLESTEROLAEMIA
     Dosage: SEE IMAGE
     Route: 048
     Dates: start: 20060901, end: 20070320
  2. AMITRIPTYLINE HCL [Concomitant]

REACTIONS (4)
  - AMNESIA [None]
  - CHEST DISCOMFORT [None]
  - DEPRESSION [None]
  - NIGHT SWEATS [None]
